FAERS Safety Report 4598574-3 (Version None)
Quarter: 2005Q1

REPORT INFORMATION
  Report Type: 
  Country: None (occurrence: None)
  Receive Date: 20050301
  Receipt Date: 20050301
  Transmission Date: 20050727
  Serious: Yes (Hospitalization)
  Sender: FDA-Public Use
  Company Number: None

PATIENT
  Sex: Male

DRUGS (13)
  1. WARFARIN 2 MG [Suspect]
     Indication: ATRIAL FIBRILLATION
     Dosage: 2 MG/3 MG MWF/ALL OTHER ORAL
     Route: 048
  2. ALBUTEROL [Concomitant]
  3. IPRATROPIUM BROMIDE [Concomitant]
  4. CARVEDILOL [Concomitant]
  5. FERROUS SULFATE TAB [Concomitant]
  6. SIMVASTATIN [Concomitant]
  7. RANITIDINE [Concomitant]
  8. POTASSIUM CHLORIDE [Concomitant]
  9. FUROSEMIDE [Concomitant]
  10. ASPIRIN [Concomitant]
  11. CALCIUM/VIT D [Concomitant]
  12. FLUNISOLIDE [Concomitant]
  13. NTG SUBLINGUAL [Concomitant]

REACTIONS (2)
  - CEREBRAL HAEMORRHAGE [None]
  - DYSARTHRIA [None]
